FAERS Safety Report 21580590 (Version 3)
Quarter: 2022Q4

REPORT INFORMATION
  Report Type: Spontaneous
  Country: JP (occurrence: JP)
  Receive Date: 20221111
  Receipt Date: 20221227
  Transmission Date: 20230113
  Serious: Yes (Hospitalization, Other)
  Sender: FDA-Public Use
  Company Number: JP-MLMSERVICE-20221031-3890532-1

PATIENT
  Age: 43 Year
  Sex: Male
  Weight: 86 kg

DRUGS (3)
  1. OXALIPLATIN [Suspect]
     Active Substance: OXALIPLATIN
     Indication: Rectal cancer stage III
     Dosage: 1084 MG/M2(250 MG (130 MG/M2 ON DAY 1, EVERY 3 WEEKS)
     Route: 042
  2. CAPECITABINE [Concomitant]
     Active Substance: CAPECITABINE
     Indication: Rectal cancer stage III
     Dosage: 2000 MG/M2 ON DAYS 1?14, EVERY 3 WEEKS
  3. BEVACIZUMAB [Concomitant]
     Active Substance: BEVACIZUMAB
     Indication: Rectal cancer stage III
     Dosage: 7.5 MG/KG ON DAY 1, EVERY 3 WEEKS

REACTIONS (7)
  - Splenomegaly [Recovered/Resolved]
  - Stomal varices [Recovered/Resolved]
  - Thrombocytopenia [Recovered/Resolved]
  - Venoocclusive liver disease [Recovered/Resolved]
  - Portal hypertension [Recovered/Resolved]
  - Stoma site haemorrhage [Recovered/Resolved]
  - Neuropathy peripheral [Recovered/Resolved]
